FAERS Safety Report 11913023 (Version 9)
Quarter: 2017Q3

REPORT INFORMATION
  Report Type: Report from Study
  Country: FR (occurrence: FR)
  Receive Date: 20160113
  Receipt Date: 20170822
  Transmission Date: 20171127
  Serious: Yes (Hospitalization, Other)
  Sender: FDA-Public Use
  Company Number: PHHY2015FR116910

PATIENT
  Age: 66 Year
  Sex: Female
  Weight: 47 kg

DRUGS (2)
  1. AFINITOR [Suspect]
     Active Substance: EVEROLIMUS
     Indication: PRODUCT USED FOR UNKNOWN INDICATION
     Dosage: 10 MG, QD
     Route: 065
     Dates: start: 20130801, end: 20150225
  2. AFINITOR [Suspect]
     Active Substance: EVEROLIMUS
     Dosage: 10 MG, QD
     Route: 065
     Dates: end: 20160712

REACTIONS (21)
  - Alanine aminotransferase increased [Unknown]
  - C-reactive protein increased [Unknown]
  - Device occlusion [Recovered/Resolved]
  - Blood creatinine increased [Unknown]
  - Neutropenia [Recovered/Resolved]
  - Gamma-glutamyltransferase increased [Unknown]
  - Hepatocellular injury [Unknown]
  - Anaemia [Recovered/Resolved]
  - Blood iron decreased [Unknown]
  - Bilirubin conjugated increased [Unknown]
  - Interstitial lung disease [Recovered/Resolved]
  - Pancreatitis acute [Recovered/Resolved]
  - Blood calcium decreased [Unknown]
  - Protein total decreased [Unknown]
  - Blood albumin decreased [Unknown]
  - Vitamin D decreased [Unknown]
  - Blood alkaline phosphatase increased [Unknown]
  - Biliary dilatation [Unknown]
  - Cholestasis [Unknown]
  - Renal failure [Not Recovered/Not Resolved]
  - Creatinine renal clearance decreased [Unknown]

NARRATIVE: CASE EVENT DATE: 20150224
